FAERS Safety Report 7132683-X (Version None)
Quarter: 2010Q4

REPORT INFORMATION
  Report Type: 
  Country: None (occurrence: None)
  Receive Date: 20101202
  Receipt Date: 20101122
  Transmission Date: 20110411
  Serious: Yes (Hospitalization, Other)
  Sender: FDA-Public Use
  Company Number: US-AMGEN-USASP2010005912

PATIENT

DRUGS (1)
  1. NPLATE [Suspect]
     Indication: IDIOPATHIC THROMBOCYTOPENIC PURPURA
     Dates: start: 20100701

REACTIONS (4)
  - ACTIVITIES OF DAILY LIVING IMPAIRED [None]
  - MYOCARDIAL INFARCTION [None]
  - PLATELET COUNT ABNORMAL [None]
  - TREMOR [None]
